FAERS Safety Report 14949170 (Version 3)
Quarter: 2018Q3

REPORT INFORMATION
  Report Type: Not Available
  Country: US (occurrence: US)
  Receive Date: 20180529
  Receipt Date: 20180703
  Transmission Date: 20181010
  Serious: Yes (Hospitalization)
  Sender: FDA-Public Use
  Company Number: US-MERZ NORTH AMERICA, INC.-18MRZ-00276

PATIENT
  Sex: Female

DRUGS (1)
  1. XEOMIN [Suspect]
     Active Substance: INCOBOTULINUMTOXINA
     Indication: MIGRAINE
     Dosage: 3 VIALS

REACTIONS (10)
  - Asthenia [Recovering/Resolving]
  - Muscular weakness [Recovering/Resolving]
  - Drug ineffective [Recovering/Resolving]
  - Neck pain [Recovering/Resolving]
  - Dizziness [Recovering/Resolving]
  - Head discomfort [Recovering/Resolving]
  - Malaise [Recovering/Resolving]
  - Dysstasia [Recovering/Resolving]
  - Migraine [Recovering/Resolving]
  - Headache [Recovering/Resolving]
